FAERS Safety Report 16238231 (Version 1)
Quarter: 2019Q2

REPORT INFORMATION
  Report Type: Spontaneous
  Country: US (occurrence: US)
  Receive Date: 20190425
  Receipt Date: 20190425
  Transmission Date: 20190711
  Serious: No
  Sender: FDA-Public Use
  Company Number: US-AMGEN INC.-USASP2019065477

PATIENT
  Age: 50 Year
  Sex: Female

DRUGS (1)
  1. AIMOVIG [Suspect]
     Active Substance: ERENUMAB-AOOE
     Indication: MIGRAINE PROPHYLAXIS
     Dosage: 70 MILLIGRAM, QMO
     Route: 065
     Dates: start: 20190306, end: 2019

REACTIONS (10)
  - Swelling [Recovered/Resolved]
  - Paraesthesia [Recovered/Resolved]
  - Migraine [Recovered/Resolved]
  - Injection site swelling [Recovered/Resolved]
  - Chest discomfort [Recovered/Resolved]
  - Injection site rash [Recovered/Resolved]
  - Hypoaesthesia [Recovered/Resolved]
  - Myalgia [Recovered/Resolved]
  - Dyspnoea [Recovered/Resolved]
  - Hypertension [Recovered/Resolved]

NARRATIVE: CASE EVENT DATE: 20190306
